FAERS Safety Report 6127048-3 (Version None)
Quarter: 2009Q1

REPORT INFORMATION
  Report Type: 
  Country: None (occurrence: None)
  Receive Date: 20090320
  Receipt Date: 20090316
  Transmission Date: 20090719
  Serious: Yes (Other)
  Sender: FDA-Public Use
  Company Number: AU-ROXANE LABORATORIES, INC.-2009-RO-00240RO

PATIENT
  Age: 43 Year
  Sex: Female

DRUGS (8)
  1. SERTRALINE [Suspect]
     Indication: MANIA
  2. SERTRALINE [Suspect]
     Indication: MAJOR DEPRESSION
  3. LAMOTRIGINE [Suspect]
     Indication: MANIA
     Dosage: 50MG
  4. LAMOTRIGINE [Suspect]
     Dosage: 300MG
  5. DIVALPROEX SODIUM [Suspect]
     Indication: BIPOLAR DISORDER
     Dosage: 750MG
  6. LEVOSULPIRIDE [Suspect]
     Indication: DRUG INEFFECTIVE
     Dosage: 100MG
  7. LEVOSULPIRIDE [Suspect]
     Indication: MANIA
     Dosage: 400MG
  8. OLANZAPINE [Concomitant]
     Dosage: 10MG

REACTIONS (2)
  - DRUG INEFFECTIVE [None]
  - TARDIVE DYSKINESIA [None]
